FAERS Safety Report 4705690-1 (Version None)
Quarter: 2005Q2

REPORT INFORMATION
  Report Type: 
  Country: None (occurrence: None)
  Receive Date: 20050629
  Receipt Date: 20050623
  Transmission Date: 20051028
  Serious: Yes (Death)
  Sender: FDA-Public Use
  Company Number: 167-20785-05060394

PATIENT
  Age: 54 Year
  Sex: Male

DRUGS (1)
  1. THALIDOMIDE - PHARMION (THALIDOMIDE) (CAPSULES) [Suspect]
     Dosage: ORAL
     Route: 048

REACTIONS (1)
  - CARDIAC DISORDER [None]
